FAERS Safety Report 5788726-9 (Version None)
Quarter: 2008Q2

REPORT INFORMATION
  Report Type: 
  Country: None (occurrence: None)
  Receive Date: 20080626
  Receipt Date: 20080616
  Transmission Date: 20081010
  Serious: Yes (Other)
  Sender: FDA-Public Use
  Company Number: JP-NOVOPROD-276229

PATIENT
  Age: 57 Year
  Sex: Female

DRUGS (7)
  1. PENFILL N CHU [Suspect]
     Indication: HYPERGLYCAEMIA
     Dosage: 8 IU, QD
     Route: 058
     Dates: start: 20030926, end: 20031101
  2. PENFILL R CHU [Suspect]
     Indication: HYPERGLYCAEMIA
     Dosage: 24 IU, QD
     Route: 058
     Dates: start: 20031026, end: 20031101
  3. HUMALOG [Suspect]
     Indication: HYPERGLYCAEMIA
     Dosage: 24 U, QD
     Route: 058
     Dates: start: 20030926
  4. HUMALOG [Suspect]
     Dates: start: 20031101
  5. HUMACART N [Concomitant]
  6. FLOMOX [Concomitant]
     Indication: DRUG USE FOR UNKNOWN INDICATION
     Dosage: UNKNOWN
     Route: 048
     Dates: end: 20031015
  7. CEFACLOR [Concomitant]
     Indication: DRUG USE FOR UNKNOWN INDICATION
     Dosage: UNKNOWN
     Route: 048
     Dates: start: 20031015

REACTIONS (1)
  - HEPATIC FUNCTION ABNORMAL [None]
